FAERS Safety Report 8578646 (Version 15)
Quarter: 2014Q4

REPORT INFORMATION
  Report Type: Report from Study
  Country: US (occurrence: US)
  Receive Date: 20120524
  Receipt Date: 20141219
  Transmission Date: 20150529
  Serious: Yes (Hospitalization, Other)
  Sender: FDA-Public Use
  Company Number: US-GLAXOSMITHKLINE-A0965921A

PATIENT
  Age: 53 Year
  Sex: Male
  Weight: 71.8 kg

DRUGS (11)
  1. FLUTICASONE PROPIONATE+SALMETEROL XINAFOATE [Suspect]
     Active Substance: FLUTICASONE PROPIONATE\SALMETEROL XINAFOATE
     Indication: CHRONIC OBSTRUCTIVE PULMONARY DISEASE
     Dosage: UNK, U
     Route: 055
  2. OXYGEN. [Concomitant]
     Active Substance: OXYGEN
  3. XOPENEX [Concomitant]
     Active Substance: LEVALBUTEROL HYDROCHLORIDE
     Indication: PRODUCT USED FOR UNKNOWN INDICATION
  4. LASIX [Concomitant]
     Active Substance: FUROSEMIDE
  5. ELECTRONIC CIGARETTE (NICOTINE) [Suspect]
     Active Substance: NICOTINE
     Indication: PRODUCT USED FOR UNKNOWN INDICATION
     Route: 048
     Dates: end: 201312
  6. SALBUTAMOL SULPHATE [Suspect]
     Active Substance: ALBUTEROL SULFATE
     Indication: CHRONIC OBSTRUCTIVE PULMONARY DISEASE
     Route: 055
  7. XANAX [Concomitant]
     Active Substance: ALPRAZOLAM
  8. ROFLUMILAST [Concomitant]
     Active Substance: ROFLUMILAST
  9. ANTIBIOTICS [Suspect]
     Active Substance: UNSPECIFIED INGREDIENT
  10. UNSPECIFIED MEDICATION [Suspect]
     Active Substance: UNSPECIFIED INGREDIENT
     Indication: PRODUCT USED FOR UNKNOWN INDICATION
     Dosage: UNK, U
     Route: 065
  11. PREDNISONE. [Suspect]
     Active Substance: PREDNISONE
     Indication: PRODUCT USED FOR UNKNOWN INDICATION
     Dosage: UNK, U

REACTIONS (48)
  - Abdominal hernia [Unknown]
  - Dyspepsia [Unknown]
  - General physical health deterioration [Unknown]
  - Eye pain [Unknown]
  - Pyrexia [Unknown]
  - Performance status decreased [Unknown]
  - Liver disorder [Unknown]
  - Abdominal pain upper [Unknown]
  - Abdominal distension [Unknown]
  - Diarrhoea [Unknown]
  - Oxygen saturation decreased [Not Recovered/Not Resolved]
  - Speech disorder [Unknown]
  - Malaise [Not Recovered/Not Resolved]
  - Urinary incontinence [Unknown]
  - Dry throat [Not Recovered/Not Resolved]
  - Painful respiration [Unknown]
  - Drug dose titration not performed [Unknown]
  - Hordeolum [Unknown]
  - Swelling face [Unknown]
  - Dyspnoea [Unknown]
  - Ill-defined disorder [Unknown]
  - Productive cough [Unknown]
  - Vascular injury [Unknown]
  - Traumatic lung injury [Unknown]
  - Fatigue [Unknown]
  - Therapeutic response decreased [Unknown]
  - Gastric ulcer [Unknown]
  - Staphylococcal infection [Not Recovered/Not Resolved]
  - Burnout syndrome [Unknown]
  - Depression [Unknown]
  - Blood pressure fluctuation [Unknown]
  - Memory impairment [Unknown]
  - Eye infection [Unknown]
  - Gastric disorder [Unknown]
  - Hypersomnia [Not Recovered/Not Resolved]
  - Faecal incontinence [Unknown]
  - Cardiac failure congestive [Unknown]
  - Anxiety [Unknown]
  - Dyspnoea exertional [Unknown]
  - Decreased appetite [Unknown]
  - Asthenia [Unknown]
  - Cough [Unknown]
  - Chronic obstructive pulmonary disease [Not Recovered/Not Resolved]
  - Disturbance in attention [Unknown]
  - Furuncle [Not Recovered/Not Resolved]
  - Cyst [Not Recovered/Not Resolved]
  - Bronchitis [Unknown]
  - Confusional state [Unknown]
